FAERS Safety Report 6365846-1 (Version None)
Quarter: 2009Q3

REPORT INFORMATION
  Report Type: 
  Country: None (occurrence: None)
  Receive Date: 20090919
  Receipt Date: 20090824
  Transmission Date: 20100115
  Serious: No
  Sender: FDA-Public Use
  Company Number: US-ABBOTT-09P-163-0593473-00

PATIENT
  Sex: Female
  Weight: 76.726 kg

DRUGS (3)
  1. HUMIRA [Suspect]
     Indication: PSORIATIC ARTHROPATHY
     Route: 058
     Dates: start: 20030101
  2. ATENOLOL [Concomitant]
     Indication: SICK SINUS SYNDROME
     Route: 048
  3. NAPROXEN [Concomitant]
     Indication: ARTHRITIS
     Route: 048

REACTIONS (2)
  - NEPHROLITHIASIS [None]
  - URINE CALCIUM INCREASED [None]
